FAERS Safety Report 15918872 (Version 2)
Quarter: 2020Q1

REPORT INFORMATION
  Report Type: Spontaneous
  Country: HR (occurrence: HR)
  Receive Date: 20190205
  Receipt Date: 20200210
  Transmission Date: 20200409
  Serious: Yes (Hospitalization, Other)
  Sender: FDA-Public Use
  Company Number: HR-MYLANLABS-2019M1008722

PATIENT
  Sex: Male
  Weight: 1.02 kg

DRUGS (1)
  1. DEXAMETHASONE. [Suspect]
     Active Substance: DEXAMETHASONE
     Indication: PRODUCT USED FOR UNKNOWN INDICATION
     Dosage: UNK
     Route: 064

REACTIONS (9)
  - Neonatal respiratory distress [Unknown]
  - Foetal exposure during pregnancy [Recovered/Resolved]
  - Cerebral ventricle dilatation [Unknown]
  - Respiratory distress [Unknown]
  - Infection [Unknown]
  - Premature baby [Recovered/Resolved]
  - Necrotising colitis [Unknown]
  - Intraventricular haemorrhage neonatal [Unknown]
  - Low birth weight baby [Unknown]
